FAERS Safety Report 4354867-6 (Version None)
Quarter: 2004Q2

REPORT INFORMATION
  Report Type: 
  Country: None (occurrence: None)
  Receive Date: 20040507
  Receipt Date: 20040413
  Transmission Date: 20050107
  Serious: Yes (Other)
  Sender: FDA-Public Use
  Company Number: PHBS2004SE05018

PATIENT
  Sex: Female

DRUGS (4)
  1. NEORAL [Suspect]
     Indication: SYSTEMIC LUPUS ERYTHEMATOSUS
     Dosage: 140 MG/DAY
  2. NEORAL [Suspect]
     Dosage: 120 MG/DAY
  3. MEDROL [Concomitant]
     Dosage: 8 MG
  4. DETRUSITOL [Concomitant]
     Dosage: 4 MG

REACTIONS (4)
  - HYPOAESTHESIA [None]
  - MUSCLE SPASMS [None]
  - PARAESTHESIA [None]
  - POLYNEUROPATHY [None]
